FAERS Safety Report 9537414 (Version 1)
Quarter: 2013Q3

REPORT INFORMATION
  Report Type: Spontaneous
  Country: US (occurrence: None)
  Receive Date: 20130918
  Receipt Date: 20130918
  Transmission Date: 20140515
  Serious: Yes (Life-Threatening, Hospitalization)
  Sender: FDA-Public Use
  Company Number: None

PATIENT
  Age: 61 Year
  Sex: 0

DRUGS (1)
  1. LANTUS SOLOSTAR [Suspect]
     Indication: DIABETES MELLITUS
     Dosage: 42 UNITS ONCE DAILY AT NIGHT GIVEN INTO/UNDER THE SKIN
     Dates: start: 20130910, end: 20130917

REACTIONS (3)
  - Dizziness [None]
  - Visual field defect [None]
  - Blood glucose decreased [None]
